FAERS Safety Report 7590108-4 (Version None)
Quarter: 2011Q3

REPORT INFORMATION
  Report Type: 
  Country: None (occurrence: None)
  Receive Date: 20110705
  Receipt Date: 20110627
  Transmission Date: 20111222
  Serious: Yes (Other)
  Sender: FDA-Public Use
  Company Number: B0728974A

PATIENT
  Age: 50 Year
  Sex: Male

DRUGS (3)
  1. STEROID [Suspect]
     Route: 065
  2. ZANTAC [Suspect]
     Dosage: 150MG TWICE PER DAY
     Route: 048
  3. UNSPECIFIED DRUGS [Suspect]
     Route: 065

REACTIONS (1)
  - LIVER FUNCTION TEST ABNORMAL [None]
